FAERS Safety Report 9714512 (Version 3)
Quarter: 2013Q4

REPORT INFORMATION
  Report Type: Spontaneous
  Country: US (occurrence: US)
  Receive Date: 20131126
  Receipt Date: 20131209
  Transmission Date: 20140711
  Serious: Yes (Other)
  Sender: FDA-Public Use
  Company Number: US-PFIZER INC-2013337307

PATIENT
  Age: 54 Year
  Sex: Male
  Weight: 107 kg

DRUGS (4)
  1. LYRICA [Suspect]
     Indication: PAIN
     Dosage: 100 MG, 3X/DAY
     Dates: start: 2007
  2. LYRICA [Suspect]
     Indication: NEUROPATHY PERIPHERAL
  3. LYRICA [Suspect]
     Indication: FIBROMYALGIA
  4. CYMBALTA [Concomitant]
     Indication: CEREBROVASCULAR ACCIDENT
     Dosage: 60 MG, 1X/DAY

REACTIONS (2)
  - Cerebrovascular accident [Unknown]
  - Malaise [Not Recovered/Not Resolved]
